FAERS Safety Report 8307315-5 (Version None)
Quarter: 2012Q2

REPORT INFORMATION
  Report Type: 
  Country: None (occurrence: None)
  Receive Date: 20120424
  Receipt Date: 20120413
  Transmission Date: 20120825
  Serious: Yes (Other)
  Sender: FDA-Public Use
  Company Number: US-BAYER-2012-039251

PATIENT
  Age: 71 Year
  Sex: Female
  Weight: 72.58 kg

DRUGS (6)
  1. ASPIRIN [Suspect]
     Dosage: 81 MG, QD
     Route: 048
     Dates: end: 20120411
  2. HYDROCHLOROTHIAZIDE [Concomitant]
     Indication: BLOOD PRESSURE ABNORMAL
     Dosage: 12.5 MG, QD
     Route: 048
  3. INDERAL [Concomitant]
     Route: 048
     Dates: start: 20110101, end: 20111206
  4. COZAAR [Concomitant]
     Indication: BLOOD PRESSURE ABNORMAL
     Dosage: 50 MG, BID
     Route: 048
  5. XARELTO [Interacting]
     Indication: ATRIAL FIBRILLATION
     Dosage: 20 MG, QD
     Route: 048
     Dates: start: 20111206, end: 20120411
  6. INDERAL [Concomitant]
     Indication: CARDIAC DISORDER
     Route: 048
     Dates: start: 20111206

REACTIONS (3)
  - HAEMATURIA [None]
  - DIARRHOEA [None]
  - TOOTHACHE [None]
